FAERS Safety Report 8271229-X (Version None)
Quarter: 2012Q2

REPORT INFORMATION
  Report Type: 
  Country: None (occurrence: None)
  Receive Date: 20120410
  Receipt Date: 20120402
  Transmission Date: 20120825
  Serious: Yes (Hospitalization, Other)
  Sender: FDA-Public Use
  Company Number: US-BAYER-2011-027807

PATIENT
  Age: 19 Year
  Sex: Female
  Weight: 82 kg

DRUGS (9)
  1. YASMIN [Suspect]
     Indication: MENORRHAGIA
  2. PHENMETRAZINE HYDROCHLORIDE [Concomitant]
     Indication: OBESITY
     Dosage: 37.5 MG, QD
     Route: 048
     Dates: start: 20080228
  3. DIFLUCAN [Concomitant]
     Dosage: 150 MG, UNK
     Route: 048
     Dates: start: 20080228
  4. PHENMETRAZINE HYDROCHLORIDE [Concomitant]
     Indication: WEIGHT DECREASED
  5. NUBAIN [Concomitant]
     Indication: HEADACHE
     Dosage: 10 MG, UNK
     Route: 030
     Dates: start: 20080228
  6. ERYTHROMYCIN [Concomitant]
     Indication: SINUSITIS
     Dosage: 500 MG, TID
     Route: 048
     Dates: start: 20080228
  7. PHENERGAN HCL [Concomitant]
     Indication: HEADACHE
     Dosage: 25 MG, UNK
     Route: 030
     Dates: start: 20080228
  8. NEXIUM [Concomitant]
     Dosage: 40 MG, UNK
  9. YASMIN [Suspect]
     Indication: CONTRACEPTION
     Dosage: UNK
     Dates: start: 20020601, end: 20050801

REACTIONS (3)
  - CHOLECYSTITIS CHRONIC [None]
  - CHOLECYSTECTOMY [None]
  - EMOTIONAL DISTRESS [None]
